FAERS Safety Report 25663516 (Version 2)
Quarter: 2025Q3

REPORT INFORMATION
  Report Type: Spontaneous
  Country: EU (occurrence: EU)
  Receive Date: 20250811
  Receipt Date: 20250813
  Transmission Date: 20251020
  Serious: Yes (Hospitalization)
  Sender: AMGEN
  Company Number: None

PATIENT
  Age: 16 Year
  Sex: Female
  Weight: 45 kg

DRUGS (3)
  1. ETANERCEPT [Suspect]
     Active Substance: ETANERCEPT
     Indication: Aphthous ulcer
     Route: 058
     Dates: start: 202210, end: 202210
  2. BCG VACCINE [Suspect]
     Active Substance: BCG VACCINE
     Indication: Tuberculosis immunisation
     Route: 030
     Dates: start: 20080925, end: 20080925
  3. HULIO [Suspect]
     Active Substance: ADALIMUMAB-FKJP
     Indication: Aphthous ulcer
     Route: 058
     Dates: start: 20220515, end: 20220901

REACTIONS (3)
  - Bacillus Calmette-Guerin infection [Recovering/Resolving]
  - Arthritis reactive [Recovering/Resolving]
  - Off label use [Unknown]

NARRATIVE: CASE EVENT DATE: 20221001
